FAERS Safety Report 6102581-9 (Version None)
Quarter: 2009Q1

REPORT INFORMATION
  Report Type: 
  Country: None (occurrence: None)
  Receive Date: 20090304
  Receipt Date: 20080829
  Transmission Date: 20090719
  Serious: No
  Sender: FDA-Public Use
  Company Number: A0746222A

PATIENT
  Age: 50 Year
  Sex: Female

DRUGS (1)
  1. REQUIP [Suspect]
     Indication: DRUG USE FOR UNKNOWN INDICATION
     Route: 065

REACTIONS (4)
  - COMPULSIVE SHOPPING [None]
  - DRUG INTOLERANCE [None]
  - FOOD CRAVING [None]
  - OEDEMA PERIPHERAL [None]
